FAERS Safety Report 21609473 (Version 2)
Quarter: 2022Q4

REPORT INFORMATION
  Report Type: Spontaneous
  Country: BR (occurrence: BR)
  Receive Date: 20221117
  Receipt Date: 20221213
  Transmission Date: 20230113
  Serious: Yes (Other)
  Sender: FDA-Public Use
  Company Number: BR-ORGANON-O2211BRA001214

PATIENT
  Sex: Female

DRUGS (8)
  1. VYTORIN [Suspect]
     Active Substance: EZETIMIBE\SIMVASTATIN
     Indication: Blood cholesterol increased
     Dosage: 1 TABLET AT NIGHT
     Route: 048
  2. OLMY ANLO [Concomitant]
     Indication: Hypertension
     Dosage: 1 TABLET IN THE MORNING
     Route: 048
  3. ATENOLOL [Concomitant]
     Active Substance: ATENOLOL
     Indication: Hypertension
     Dosage: 2 TABLETS DAILY (1 TABLET IN THE MORNING, 1 TABLET IN THE EVENING)
     Route: 048
     Dates: start: 2014
  4. GLICLAZIDE [Concomitant]
     Active Substance: GLICLAZIDE
     Indication: Type 2 diabetes mellitus
     Dosage: 1 TABLET IN THE MORNING
     Route: 048
     Dates: start: 2020
  5. METFORMIN HYDROCHLORIDE [Concomitant]
     Active Substance: METFORMIN HYDROCHLORIDE
     Dosage: 2 TABLETS IN EVENING, QPM
     Route: 048
     Dates: start: 2020
  6. PAROXETINE [Concomitant]
     Active Substance: PAROXETINE
     Indication: Panic disorder
     Dosage: 1 TABLET IN THE EVENING
     Route: 048
     Dates: start: 2013
  7. UC II [Concomitant]
     Indication: Osteoarthritis
     Dosage: DAILY, POWDER FORM THAT DISSOLVES IN WATER
  8. CAFFEINE\DIPYRONE\ORPHENADRINE [Concomitant]
     Active Substance: CAFFEINE\DIPYRONE\ORPHENADRINE
     Indication: Pain
     Dosage: EVERY 6 HOURS

REACTIONS (1)
  - Type 2 diabetes mellitus [Unknown]

NARRATIVE: CASE EVENT DATE: 20200101
